FAERS Safety Report 16945479 (Version 1)
Quarter: 2019Q4

REPORT INFORMATION
  Report Type: Spontaneous
  Country: US (occurrence: US)
  Receive Date: 20191021
  Receipt Date: 20191021
  Transmission Date: 20200122
  Serious: Yes (Other)
  Sender: FDA-Public Use
  Company Number: None

PATIENT
  Age: 33 Year
  Sex: Female
  Weight: 81.9 kg

DRUGS (1)
  1. OPSUMIT [Suspect]
     Active Substance: MACITENTAN
     Indication: PULMONARY HYPERTENSION
     Dates: start: 20191016, end: 20191018

REACTIONS (10)
  - Peripheral swelling [None]
  - Heart rate increased [None]
  - Pyrexia [None]
  - Nausea [None]
  - Sinus disorder [None]
  - Asthenia [None]
  - Headache [None]
  - Chills [None]
  - Head discomfort [None]
  - Therapy cessation [None]

NARRATIVE: CASE EVENT DATE: 20191018
